FAERS Safety Report 7430586-4 (Version None)
Quarter: 2011Q2

REPORT INFORMATION
  Report Type: 
  Country: None (occurrence: None)
  Receive Date: 20110421
  Receipt Date: 20100730
  Transmission Date: 20111010
  Serious: No
  Sender: FDA-Public Use
  Company Number: US-ASTRAZENECA-2010SE35781

PATIENT
  Age: 69 Year
  Sex: Female
  Weight: 70.3 kg

DRUGS (6)
  1. LISINOPRIL [Concomitant]
     Indication: BLOOD PRESSURE
  2. NORVASC [Concomitant]
     Indication: BLOOD PRESSURE
  3. TOPROL-XL [Suspect]
     Route: 048
     Dates: start: 20100701, end: 20100701
  4. TOPROL-XL [Suspect]
     Route: 048
     Dates: start: 20100701
  5. TOPROL-XL [Suspect]
     Route: 048
     Dates: start: 20100701, end: 20100701
  6. OXYCODONE HCL [Concomitant]
     Indication: PAIN

REACTIONS (2)
  - CONFUSIONAL STATE [None]
  - SPEECH DISORDER [None]
